FAERS Safety Report 7357670-8 (Version None)
Quarter: 2011Q1

REPORT INFORMATION
  Report Type: 
  Country: None (occurrence: None)
  Receive Date: 20110317
  Receipt Date: 20110307
  Transmission Date: 20110831
  Serious: Yes (Other)
  Sender: FDA-Public Use
  Company Number: US-JNJFOC-20110206176

PATIENT
  Sex: Female
  Weight: 67.59 kg

DRUGS (7)
  1. FENTANYL-100 [Suspect]
     Dosage: NDC: 0781-7241-55
     Route: 062
  2. FENTANYL-100 [Suspect]
     Route: 062
  3. FENTANYL-100 [Suspect]
     Dosage: NDC: 0781-7241-55
     Route: 062
  4. FENTANYL-100 [Suspect]
     Indication: BACK PAIN
     Route: 062
  5. FENTANYL-100 [Suspect]
     Route: 062
  6. FENTANYL-100 [Suspect]
     Route: 062
  7. UNKNOWN MEDICATION [Concomitant]
     Route: 065

REACTIONS (10)
  - SOMNOLENCE [None]
  - PRODUCT QUALITY ISSUE [None]
  - FALL [None]
  - FATIGUE [None]
  - TREATMENT NONCOMPLIANCE [None]
  - PAIN [None]
  - WRONG TECHNIQUE IN DRUG USAGE PROCESS [None]
  - DIZZINESS [None]
  - RIB FRACTURE [None]
  - MALAISE [None]
